FAERS Safety Report 14247999 (Version 5)
Quarter: 2018Q1

REPORT INFORMATION
  Report Type: Spontaneous
  Country: US (occurrence: US)
  Receive Date: 20171204
  Receipt Date: 20180112
  Transmission Date: 20180508
  Serious: Yes (Hospitalization, Other)
  Sender: FDA-Public Use
  Company Number: US-GLAXOSMITHKLINE-US2017GSK184633

PATIENT
  Sex: Female

DRUGS (2)
  1. FLOLAN [Suspect]
     Active Substance: EPOPROSTENOL SODIUM
     Indication: PULMONARY ARTERIAL HYPERTENSION
     Dosage: 29.55 NG/KG/MIN, CO
     Route: 042
     Dates: start: 20130813
  2. FLOLAN [Suspect]
     Active Substance: EPOPROSTENOL SODIUM
     Indication: PULMONARY ARTERIAL HYPERTENSION
     Dosage: UNK
     Route: 042
     Dates: start: 20160929

REACTIONS (7)
  - Hypoxia [Unknown]
  - Confusional state [Not Recovered/Not Resolved]
  - Dyspnoea [Unknown]
  - Hospitalisation [Unknown]
  - Device infusion issue [Unknown]
  - Respiratory distress [Unknown]
  - Accident at home [Unknown]
